FAERS Safety Report 13564505 (Version 2)
Quarter: 2017Q3

REPORT INFORMATION
  Report Type: Spontaneous
  Country: JP (occurrence: JP)
  Receive Date: 20170519
  Receipt Date: 20170712
  Transmission Date: 20171127
  Serious: Yes (Death, Hospitalization, Other)
  Sender: FDA-Public Use
  Company Number: JP-BAYER-2017-090657

PATIENT
  Age: 45 Year
  Sex: Female
  Weight: 43 kg

DRUGS (2)
  1. STIVARGA [Suspect]
     Active Substance: REGORAFENIB
     Indication: COLON CANCER
     Dosage: 160 MG, QD
     Route: 048
     Dates: start: 20140514, end: 20140527
  2. STIVARGA [Suspect]
     Active Substance: REGORAFENIB
     Indication: COLON CANCER
     Dosage: 120 MG, QD
     Route: 048
     Dates: start: 20140617, end: 20140624

REACTIONS (6)
  - Palmar-plantar erythrodysaesthesia syndrome [None]
  - Decreased appetite [Recovering/Resolving]
  - Colon cancer [Fatal]
  - Gastrointestinal obstruction [None]
  - Malaise [None]
  - Abdominal pain [Recovering/Resolving]

NARRATIVE: CASE EVENT DATE: 2014
